FAERS Safety Report 6716415-2 (Version None)
Quarter: 2010Q2

REPORT INFORMATION
  Report Type: 
  Country: None (occurrence: None)
  Receive Date: 20100507
  Receipt Date: 20100426
  Transmission Date: 20101027
  Serious: Yes (Hospitalization)
  Sender: FDA-Public Use
  Company Number: US-MYLANLABS-2010S1007358

PATIENT
  Age: 75 Year
  Sex: Female

DRUGS (7)
  1. VEGF TRAP-EYE [Suspect]
     Indication: MACULAR DEGENERATION
     Route: 031
     Dates: start: 20080812
  2. TEMAZEPAM [Suspect]
     Indication: SLEEP DISORDER
     Route: 048
     Dates: start: 20070101, end: 20100401
  3. MORPHINE [Suspect]
     Indication: BACK PAIN
     Route: 048
     Dates: start: 20100327
  4. HYDROCODONE BITARTRATE [Concomitant]
     Indication: BACK PAIN
     Route: 048
     Dates: start: 20070101, end: 20100310
  5. BENADRYL [Concomitant]
     Indication: SEASONAL ALLERGY
     Route: 048
     Dates: start: 20080804
  6. FLAXSEED OIL [Concomitant]
     Indication: ROUTINE HEALTH MAINTENANCE
     Route: 048
     Dates: start: 20081119
  7. SOMA [Concomitant]
     Indication: BACK PAIN
     Route: 048
     Dates: start: 20100219

REACTIONS (2)
  - DIZZINESS [None]
  - LOSS OF CONSCIOUSNESS [None]
